FAERS Safety Report 21035005 (Version 7)
Quarter: 2022Q4

REPORT INFORMATION
  Report Type: Report from Study
  Country: GB (occurrence: None)
  Receive Date: 20220701
  Receipt Date: 20221214
  Transmission Date: 20230113
  Serious: Yes (Hospitalization)
  Sender: FDA-Public Use
  Company Number: GB-ROCHE-3127204

PATIENT
  Age: 52 Year
  Sex: Female

DRUGS (18)
  1. ATEZOLIZUMAB [Suspect]
     Active Substance: ATEZOLIZUMAB
     Indication: Oesophageal cancer metastatic
     Dosage: ON 22/JUN/2022 RECEIVED MOST RECENT DOSE OF ATEZOLIZUMAB 1200 MG PRIOR TO AE
     Route: 041
     Dates: start: 20220622
  2. TIRAGOLUMAB [Suspect]
     Active Substance: TIRAGOLUMAB
     Indication: Oesophageal cancer metastatic
     Dosage: ON 22/JUN/2022 RECEIVED MOST RECENT DOSE OF TRIAGOLUMAB 600 MG PRIOR TO AE
     Route: 042
     Dates: start: 20220622
  3. CISPLATIN [Suspect]
     Active Substance: CISPLATIN
     Indication: Oesophageal cancer metastatic
     Dosage: ON 22/JUN/2022 RECEIVED MOST RECENT DOSE OF CISPLATIN 184 MG
     Route: 042
     Dates: start: 20220622
  4. FLUOROURACIL [Suspect]
     Active Substance: FLUOROURACIL
     Indication: Oesophageal cancer metastatic
     Dosage: ON 22/JUN/2022 RECEIVED MOST RECENT DOSE OF 5-FLUOROURACIL PRIOR TO AE AND ENDED ON 23/JUN/2022
     Route: 042
     Dates: start: 20220622
  5. ACETAMINOPHEN [Concomitant]
     Active Substance: ACETAMINOPHEN
     Indication: Nausea
     Route: 048
     Dates: start: 202205
  6. COCODAMOL [Concomitant]
     Active Substance: ACETAMINOPHEN\CODEINE PHOSPHATE
     Indication: Chest pain
     Dosage: 30 TABLET
     Route: 048
     Dates: start: 202205
  7. RAMIPRIL [Concomitant]
     Active Substance: RAMIPRIL
     Indication: Hypertension
     Route: 048
     Dates: start: 202205
  8. TINZAPARIN [Concomitant]
     Active Substance: TINZAPARIN
     Indication: Deep vein thrombosis
     Dosage: DOSE: 6000 U
     Route: 058
     Dates: start: 20220621, end: 20220628
  9. TINZAPARIN [Concomitant]
     Active Substance: TINZAPARIN
     Dosage: GIVEN FOR PROPHYLAXIS: NO
  10. APREPITANT [Concomitant]
     Active Substance: APREPITANT
     Route: 048
     Dates: start: 20220623
  11. DEXAMETHASONE [Concomitant]
     Active Substance: DEXAMETHASONE
     Route: 048
     Dates: start: 20220623
  12. DOMPERIDONE [Concomitant]
     Active Substance: DOMPERIDONE
     Route: 048
     Dates: start: 20220622
  13. SANDO-K [Concomitant]
     Indication: Hypokalaemia
     Route: 048
     Dates: start: 20220827, end: 20220829
  14. TRIMETHOPRIM [Concomitant]
     Active Substance: TRIMETHOPRIM
     Indication: Urinary tract infection
     Route: 048
     Dates: start: 20220628, end: 20220705
  15. NYSTATIN [Concomitant]
     Active Substance: NYSTATIN
     Indication: Oral candidiasis
     Dosage: 1000 U
     Route: 048
     Dates: start: 20220627, end: 20220704
  16. CYCLIZINE [Concomitant]
     Active Substance: CYCLIZINE
     Indication: Nausea
     Route: 048
     Dates: start: 20220624
  17. LACTULOSE [Concomitant]
     Active Substance: LACTULOSE
     Indication: Constipation
     Route: 048
     Dates: start: 20220626
  18. NITROFURANTOIN [Concomitant]
     Active Substance: NITROFURANTOIN
     Indication: Urinary tract infection
     Route: 048
     Dates: start: 20220707, end: 20220712

REACTIONS (1)
  - Bradycardia [Recovered/Resolved]

NARRATIVE: CASE EVENT DATE: 20220623
